FAERS Safety Report 16326042 (Version 1)
Quarter: 2019Q2

REPORT INFORMATION
  Report Type: Spontaneous
  Country: ES (occurrence: ES)
  Receive Date: 20190517
  Receipt Date: 20190517
  Transmission Date: 20190711
  Serious: Yes (Life-Threatening, Hospitalization)
  Sender: FDA-Public Use
  Company Number: ES-MYLANLABS-2019M1046100

PATIENT
  Age: 24 Year
  Sex: Female

DRUGS (1)
  1. LEVONORGESTREL. [Suspect]
     Active Substance: LEVONORGESTREL
     Indication: PRODUCT USED FOR UNKNOWN INDICATION
     Dosage: UNK
     Route: 015

REACTIONS (5)
  - Disseminated intravascular coagulation [Recovered/Resolved]
  - Toxic shock syndrome streptococcal [Recovered/Resolved]
  - Thrombophlebitis septic [Recovered/Resolved]
  - Ovarian necrosis [Recovered/Resolved]
  - Multiple organ dysfunction syndrome [Recovered/Resolved]
